FAERS Safety Report 21996924 (Version 1)
Quarter: 2023Q1

REPORT INFORMATION
  Report Type: Spontaneous
  Country: US (occurrence: US)
  Receive Date: 20230215
  Receipt Date: 20230215
  Transmission Date: 20230418
  Serious: Yes (Other)
  Sender: FDA-Public Use
  Company Number: US-HORIZON THERAPEUTICS-HZN-2022-009406

PATIENT

DRUGS (2)
  1. TEPEZZA [Suspect]
     Active Substance: TEPROTUMUMAB-TRBW
     Indication: Endocrine ophthalmopathy
     Dosage: 1ST INFUSION
     Route: 042
     Dates: start: 202107
  2. TEPEZZA [Suspect]
     Active Substance: TEPROTUMUMAB-TRBW
     Dosage: FINAL INFUSION
     Route: 042
     Dates: start: 202112

REACTIONS (10)
  - Deafness permanent [Unknown]
  - Disability [Unknown]
  - Injury [Unknown]
  - Pain [Unknown]
  - Economic problem [Unknown]
  - General physical health deterioration [Unknown]
  - Concomitant disease aggravated [Unknown]
  - Anxiety [Unknown]
  - Emotional distress [Unknown]
  - Tinnitus [Unknown]
